FAERS Safety Report 8071083-5 (Version None)
Quarter: 2012Q1

REPORT INFORMATION
  Report Type: 
  Country: None (occurrence: None)
  Receive Date: 20120125
  Receipt Date: 20120119
  Transmission Date: 20120608
  Serious: Yes (Death, Other)
  Sender: FDA-Public Use
  Company Number: BR-PFIZER INC-2012015399

PATIENT
  Age: 80 Year
  Sex: Female

DRUGS (7)
  1. NAPRIX [Concomitant]
     Indication: BLOOD PRESSURE ABNORMAL
     Dosage: ONE TABLET DAILY
     Dates: start: 20100101
  2. LEVOTHYROXINE SODIUM [Concomitant]
     Indication: THYROID DISORDER
     Dosage: ONE TABLET DAILY
     Dates: start: 20110601
  3. CALCIUM [Concomitant]
     Indication: BONE DISORDER
     Dosage: 1 TABLET (IN THE LUNCH)
     Dates: start: 20100101
  4. LYRICA [Suspect]
     Indication: ANXIETY
     Dosage: 75 MG, 1X/DAY
     Route: 048
     Dates: start: 20110901, end: 20110901
  5. ALPRAZOLAM [Suspect]
     Indication: ANXIETY
     Dosage: 1.4 TABLET IN THE MORNING AND 0.5 TABLET AT NIGHT
     Route: 048
     Dates: start: 20110601
  6. CYMBALTA [Concomitant]
     Indication: MOOD ALTERED
     Dosage: ONE TABLET DAILY
     Route: 048
     Dates: start: 20110501
  7. CALTREN [Concomitant]
     Indication: BLOOD PRESSURE ABNORMAL
     Dosage: ONE TABLET DAILY
     Dates: start: 20110501

REACTIONS (2)
  - OEDEMA [None]
  - CARDIO-RESPIRATORY ARREST [None]
